FAERS Safety Report 4652458-0 (Version None)
Quarter: 2005Q2

REPORT INFORMATION
  Report Type: 
  Country: None (occurrence: None)
  Receive Date: 20050504
  Receipt Date: 20050223
  Transmission Date: 20051028
  Serious: Yes (Death)
  Sender: FDA-Public Use
  Company Number: US-BRISTOL-MYERS SQUIBB COMPANY-12874855

PATIENT
  Age: 56 Year
  Sex: Male

DRUGS (2)
  1. PARAPLATIN [Suspect]
     Indication: NEOPLASM MALIGNANT
  2. TAXOL [Suspect]
     Indication: NEOPLASM MALIGNANT

REACTIONS (1)
  - DEATH [None]
